FAERS Safety Report 8121174-5 (Version None)
Quarter: 2012Q1

REPORT INFORMATION
  Report Type: 
  Country: None (occurrence: None)
  Receive Date: 20120208
  Receipt Date: 20120125
  Transmission Date: 20120608
  Serious: Yes (Hospitalization)
  Sender: FDA-Public Use
  Company Number: DE-RANBAXY-2009RR-23599

PATIENT
  Age: 81 Year
  Sex: Male
  Weight: 68 kg

DRUGS (7)
  1. DIOVAN [Concomitant]
     Indication: LEFT VENTRICULAR FAILURE
     Dosage: UNK
     Route: 048
     Dates: start: 20060901
  2. CIPROFLOXACIN [Suspect]
     Indication: ERYSIPELAS
     Dosage: UNK
     Route: 048
     Dates: start: 20080624, end: 20080705
  3. FUROSEMIDE [Concomitant]
     Indication: LEFT VENTRICULAR FAILURE
     Route: 048
  4. FALITHROM ^HEXAL^ [Suspect]
     Indication: ATRIAL FIBRILLATION
     Dosage: UNK
     Route: 048
     Dates: start: 19890101, end: 20080705
  5. CASODEX [Concomitant]
     Indication: PROSTATE CANCER
     Dosage: UNK
     Route: 048
     Dates: start: 20060101
  6. DIGITOXIN ^MERCK^ [Concomitant]
     Indication: LEFT VENTRICULAR FAILURE
     Route: 048
  7. METAMIZOLE [Concomitant]
     Indication: PROSTATE CANCER
     Route: 048

REACTIONS (2)
  - DRUG INTERACTION [None]
  - GASTROINTESTINAL HAEMORRHAGE [None]
